FAERS Safety Report 6161269-9 (Version None)
Quarter: 2009Q2

REPORT INFORMATION
  Report Type: 
  Country: None (occurrence: None)
  Receive Date: 20090421
  Receipt Date: 20090417
  Transmission Date: 20091009
  Serious: Yes (Hospitalization)
  Sender: FDA-Public Use
  Company Number: BR-ASTRAZENECA-2009UW09754

PATIENT
  Age: 81 Year
  Sex: Male

DRUGS (1)
  1. ATACAND HCT [Suspect]
     Indication: HYPERTENSION
     Route: 048
     Dates: start: 20090201

REACTIONS (1)
  - GASTROINTESTINAL STROMAL TUMOUR [None]
